FAERS Safety Report 5596551-7 (Version None)
Quarter: 2008Q1

REPORT INFORMATION
  Report Type: 
  Country: None (occurrence: None)
  Receive Date: 20080118
  Receipt Date: 20080110
  Transmission Date: 20080703
  Serious: Yes (Hospitalization, Other)
  Sender: FDA-Public Use
  Company Number: US-PFIZER INC-2007096874

PATIENT
  Sex: Female
  Weight: 64 kg

DRUGS (3)
  1. DEPO-PROVERA SUSPENSION/INJ [Suspect]
     Indication: ENDOMETRIOSIS
     Route: 030
     Dates: start: 20070622, end: 20070622
  2. SOMA [Concomitant]
  3. DIAZEPAM [Concomitant]

REACTIONS (5)
  - DEEP VEIN THROMBOSIS [None]
  - LOCAL SWELLING [None]
  - LYMPH NODE PAIN [None]
  - MUSCLE SPASMS [None]
  - PYREXIA [None]
